FAERS Safety Report 4799691-5 (Version None)
Quarter: 2005Q4

REPORT INFORMATION
  Report Type: 
  Country: None (occurrence: None)
  Receive Date: 20051013
  Receipt Date: 20050927
  Transmission Date: 20060501
  Serious: Yes (Hospitalization)
  Sender: FDA-Public Use
  Company Number: 2005134082

PATIENT
  Age: 74 Year
  Sex: Female
  Weight: 87 kg

DRUGS (10)
  1. AMLODIPINE [Suspect]
     Indication: ILL-DEFINED DISORDER
     Dosage: 5 MG (5 MG, 1, IN 1 D), ORAL
     Route: 048
  2. ALPRAZOLAM [Suspect]
     Indication: ILL-DEFINED DISORDER
     Dosage: 0.5 MG (1 IN 1 D), ORAL
     Route: 048
  3. METOPROLOL TARTRATE [Suspect]
     Indication: ILL-DEFINED DISORDER
     Dosage: 200 MG (200 MG, 1 IN 1 D), ORAL
     Route: 048
  4. ACETAMINOPHEN [Suspect]
     Indication: ILL-DEFINED DISORDER
     Dosage: 1500 MG (500 MG, 3 IN 1 D), ORAL
     Route: 048
  5. AMITRIPTYLINE HYDROCHLORIDE [Suspect]
     Indication: ILL-DEFINED DISORDER
     Dosage: 40 MG/ML, ORAL
     Route: 048
  6. FRACTAL (FLUVSASTATIN) [Suspect]
     Indication: ILL-DEFINED DISORDER
     Dosage: 80 MG (1 IN 1 D), ORAL
     Route: 048
  7. NORMACOL (FRANGULA EXTRACT, STERCULIA) [Concomitant]
  8. PREDNISONE [Concomitant]
  9. RETINOL (RETINOL) [Concomitant]
  10. REFRESH (POLYVIDONE, POLYVINYL ALCOHOL) [Concomitant]

REACTIONS (5)
  - BLOOD CREATINE PHOSPHOKINASE INCREASED [None]
  - BLOOD CREATINE PHOSPHOKINASE MB INCREASED [None]
  - BLOOD LACTATE DEHYDROGENASE INCREASED [None]
  - MYALGIA [None]
  - MYOGLOBIN BLOOD INCREASED [None]
